FAERS Safety Report 14407338 (Version 1)
Quarter: 2018Q1

REPORT INFORMATION
  Report Type: Spontaneous
  Country: US (occurrence: US)
  Receive Date: 20180116
  Receipt Date: 20180116
  Transmission Date: 20180509
  Serious: No
  Sender: FDA-Public Use
  Company Number: None

PATIENT
  Age: 47 Year
  Sex: Female
  Weight: 71.1 kg

DRUGS (1)
  1. XARELTO [Suspect]
     Active Substance: RIVAROXABAN
     Indication: DEEP VEIN THROMBOSIS
     Dosage: ?          QUANTITY:1 CAPSULE(S);?
     Route: 048
     Dates: start: 20170907

REACTIONS (7)
  - Menorrhagia [None]
  - Rash [None]
  - Pain in extremity [None]
  - Alopecia [None]
  - Swelling [None]
  - Dizziness [None]
  - Dry skin [None]

NARRATIVE: CASE EVENT DATE: 20171001
